FAERS Safety Report 9476429 (Version 7)
Quarter: 2013Q4

REPORT INFORMATION
  Report Type: Spontaneous
  Country: CA (occurrence: CA)
  Receive Date: 20130826
  Receipt Date: 20131202
  Transmission Date: 20140711
  Serious: Yes (Death, Hospitalization, Other)
  Sender: FDA-Public Use
  Company Number: CA-ROCHE-1265297

PATIENT
  Age: 20 Year
  Sex: Female

DRUGS (6)
  1. XOLAIR [Suspect]
     Indication: ASTHMA
     Route: 058
     Dates: start: 20130531
  2. XOLAIR [Suspect]
     Indication: BRONCHOPULMONARY ASPERGILLOSIS ALLERGIC
     Route: 058
     Dates: start: 20130917
  3. SPORANOX [Concomitant]
  4. PREDNISONE [Concomitant]
  5. ALVESCO [Concomitant]
  6. ZITHROMAX [Concomitant]

REACTIONS (8)
  - Death [Fatal]
  - Cystic fibrosis [Unknown]
  - Pulmonary haemorrhage [Unknown]
  - Lung infection [Unknown]
  - Ventricular tachycardia [Unknown]
  - Ventricular fibrillation [Unknown]
  - Malaise [Unknown]
  - Heart rate increased [Not Recovered/Not Resolved]
